FAERS Safety Report 12791021 (Version 1)
Quarter: 2016Q3

REPORT INFORMATION
  Report Type: Spontaneous
  Country: US (occurrence: US)
  Receive Date: 20160929
  Receipt Date: 20160929
  Transmission Date: 20161109
  Serious: Yes (Other)
  Sender: FDA-Public Use
  Company Number: US-GLENMARK PHARMACEUTICALS INC, USA.-2016GMK024280

PATIENT

DRUGS (1)
  1. MOMETASONE FUROATE. [Suspect]
     Active Substance: MOMETASONE FUROATE
     Indication: DERMATITIS CONTACT
     Dosage: USING ONCE A DAY
     Route: 061
     Dates: start: 20160812, end: 20160908

REACTIONS (9)
  - Oral herpes [Unknown]
  - Application site pain [Unknown]
  - Application site folliculitis [Unknown]
  - Immunodeficiency [Unknown]
  - Product use issue [Unknown]
  - Herpes virus infection [Unknown]
  - Application site papules [Unknown]
  - Bacterial infection [Unknown]
  - Application site vesicles [Unknown]
